FAERS Safety Report 6716242-6 (Version None)
Quarter: 2010Q2

REPORT INFORMATION
  Report Type: 
  Country: None (occurrence: None)
  Receive Date: 20100507
  Receipt Date: 20100430
  Transmission Date: 20101027
  Serious: Yes (Other)
  Sender: FDA-Public Use
  Company Number: GB-BRISTOL-MYERS SQUIBB COMPANY-15045982

PATIENT
  Age: 48 Year
  Sex: Female
  Weight: 63 kg

DRUGS (1)
  1. SPRYCEL [Suspect]
     Indication: CHRONIC MYELOID LEUKAEMIA
     Route: 048

REACTIONS (5)
  - BREAST SWELLING [None]
  - BREAST TENDERNESS [None]
  - MENORRHAGIA [None]
  - MENSTRUATION DELAYED [None]
  - OESTRADIOL INCREASED [None]
